FAERS Safety Report 24403785 (Version 1)
Quarter: 2024Q4

REPORT INFORMATION
  Report Type: Spontaneous
  Country: US (occurrence: US)
  Receive Date: 20241007
  Receipt Date: 20241007
  Transmission Date: 20250115
  Serious: No
  Sender: RANBAXY
  Company Number: US-SUN PHARMACEUTICAL INDUSTRIES LTD-2024R1-454002

PATIENT
  Sex: Female

DRUGS (4)
  1. CEQUA [Suspect]
     Active Substance: CYCLOSPORINE
     Indication: Dry eye
     Dosage: ONE DROP IN BOTH EYES, BID
     Route: 047
     Dates: start: 20240618, end: 20240621
  2. CEQUA [Suspect]
     Active Substance: CYCLOSPORINE
     Dosage: ONE DROP IN BOTH EYES, DAILY
     Route: 047
  3. MONTELUKAST [Concomitant]
     Active Substance: MONTELUKAST
     Indication: Asthma
     Route: 065
  4. BUDESONIDE [Concomitant]
     Active Substance: BUDESONIDE
     Indication: Asthma
     Route: 065

REACTIONS (6)
  - Eye pain [Recovering/Resolving]
  - Eye irritation [Recovering/Resolving]
  - Drug ineffective [Unknown]
  - Intentional product use issue [Unknown]
  - Therapy cessation [Unknown]
  - Drug intolerance [Unknown]
